FAERS Safety Report 6403498-2 (Version None)
Quarter: 2009Q4

REPORT INFORMATION
  Report Type: 
  Country: None (occurrence: None)
  Receive Date: 20091015
  Receipt Date: 20091015
  Transmission Date: 20100525
  Serious: Yes (Life-Threatening, Other)
  Sender: FDA-Public Use
  Company Number: None

PATIENT
  Age: 53 Year
  Sex: Female
  Weight: 86.1834 kg

DRUGS (2)
  1. AVAPRO [Suspect]
     Indication: DIABETIC NEPHROPATHY
     Dosage: 1/2 TABLET ONCE A DAY PO
     Route: 048
     Dates: start: 20090605, end: 20090622
  2. METFORMIN HCL [Suspect]
     Indication: DIABETES MELLITUS
     Dosage: ONE TABLET TWICE DAILY PO
     Route: 048
     Dates: start: 20090209, end: 20090627

REACTIONS (9)
  - AGITATION [None]
  - BLOOD THYROID STIMULATING HORMONE DECREASED [None]
  - DRUG INTOLERANCE [None]
  - DRUG LEVEL INCREASED [None]
  - DYSPNOEA [None]
  - MUSCULOSKELETAL PAIN [None]
  - MYOCARDIAL INFARCTION [None]
  - REFUSAL OF TREATMENT BY PATIENT [None]
  - TACHYCARDIA [None]
